FAERS Safety Report 7590985-7 (Version None)
Quarter: 2011Q3

REPORT INFORMATION
  Report Type: 
  Country: None (occurrence: None)
  Receive Date: 20110705
  Receipt Date: 20110630
  Transmission Date: 20111222
  Serious: Yes (Death)
  Sender: FDA-Public Use
  Company Number: PHHY2011BR58491

PATIENT
  Sex: Female
  Weight: 55 kg

DRUGS (3)
  1. EXELON [Suspect]
     Dosage: 18MG/10CM2 (ONE PATCH A DAY)
     Route: 062
     Dates: start: 20110201, end: 20110301
  2. RISPERIDONE [Concomitant]
     Dosage: 1 DF, DAILY
     Route: 048
  3. ANCORON [Concomitant]
     Dosage: 1 DF, DAILY
     Route: 048

REACTIONS (2)
  - DEATH [None]
  - AGGRESSION [None]
